FAERS Safety Report 12409228 (Version 2)
Quarter: 2016Q4

REPORT INFORMATION
  Report Type: Spontaneous
  Country: US (occurrence: US)
  Receive Date: 20160526
  Receipt Date: 20161118
  Transmission Date: 20170207
  Serious: Yes (Death)
  Sender: FDA-Public Use
  Company Number: US-B.I. PHARMACEUTICALS,INC./RIDGEFIELD-2016-BI-34044BI

PATIENT

DRUGS (9)
  1. PRADAXA [Suspect]
     Active Substance: DABIGATRAN ETEXILATE MESYLATE
     Route: 048
     Dates: start: 20130308, end: 20140309
  2. PRADAXA [Suspect]
     Active Substance: DABIGATRAN ETEXILATE MESYLATE
     Route: 048
     Dates: start: 20120119, end: 20130119
  3. INSULIN,ASPART 100UN/ML NOVO FLEXPEN 3ML [Concomitant]
     Indication: DIABETES MELLITUS
     Dosage: INJECT SLIDING SCALE  AS NEEDED , DISCARD
  4. INSULIN GLARG(SOLOSTAR) PRE-FILL 3ML [Concomitant]
     Indication: DIABETES MELLITUS
     Dosage: PREFILL 3 ML; EVERY MORNING
  5. PRADAXA [Suspect]
     Active Substance: DABIGATRAN ETEXILATE MESYLATE
     Route: 048
     Dates: start: 20110918, end: 20120918
  6. ATORVASTATIN CALCIUM. [Concomitant]
     Active Substance: ATORVASTATIN CALCIUM
     Indication: HYPERCHOLESTEROLAEMIA
     Dosage: AT BEDTIME
     Route: 048
  7. ZZWARFARIN NA (GOLDEN STATE) [Concomitant]
     Indication: ANTICOAGULANT THERAPY
     Dosage: EXCEPT TAKE ONE AND ONE-HALF  TUES AND THUR
     Route: 048
  8. PRADAXA [Suspect]
     Active Substance: DABIGATRAN ETEXILATE MESYLATE
     Indication: ATRIAL FIBRILLATION
     Route: 048
     Dates: start: 20140408, end: 20150409
  9. ROSUVASTATIN CA [Concomitant]
     Active Substance: ROSUVASTATIN CALCIUM
     Indication: HYPERCHOLESTEROLAEMIA
     Dosage: AT BEDTIME
     Route: 048

REACTIONS (1)
  - Internal haemorrhage [Fatal]
